FAERS Safety Report 6425689-7 (Version None)
Quarter: 2009Q4

REPORT INFORMATION
  Report Type: 
  Country: None (occurrence: None)
  Receive Date: 20091103
  Receipt Date: 20091022
  Transmission Date: 20100525
  Serious: Yes (Hospitalization, Other)
  Sender: FDA-Public Use
  Company Number: PHHY2009VE46150

PATIENT
  Sex: Female

DRUGS (8)
  1. EXJADE [Suspect]
     Indication: SICKLE CELL ANAEMIA
     Dosage: 500 MG, QD
     Dates: start: 20090701
  2. EXJADE [Suspect]
     Indication: SERUM FERRITIN INCREASED
     Dosage: 1000 MG, QD
  3. HYDREA [Concomitant]
     Indication: SICKLE CELL ANAEMIA
     Dosage: 500 MG, QD
     Dates: start: 20030101
  4. OMEPRAZOLE [Concomitant]
     Dosage: 40 MG, QD
     Dates: start: 20090601
  5. FOLIC ACID [Concomitant]
     Dosage: 10 MG, UNK
  6. SUCRALFATE [Concomitant]
     Dosage: 2 TABLESPOONS BEFORE MEALS
  7. CIPROFLOXACIN [Concomitant]
     Dosage: EACH 12 HOURS
     Route: 042
  8. METRONIDAZOLE [Concomitant]
     Route: 042

REACTIONS (6)
  - CHROMATURIA [None]
  - HEPATITIS [None]
  - NAUSEA [None]
  - SERUM FERRITIN INCREASED [None]
  - SICKLE CELL ANAEMIA WITH CRISIS [None]
  - TACHYCARDIA [None]
